FAERS Safety Report 9466896 (Version 2)
Quarter: 2013Q3

REPORT INFORMATION
  Report Type: Spontaneous
  Country: JP (occurrence: JP)
  Receive Date: 20130820
  Receipt Date: 20130828
  Transmission Date: 20140515
  Serious: Yes (Death, Hospitalization)
  Sender: FDA-Public Use
  Company Number: JP-BAXTER-2013BAX031932

PATIENT
  Sex: Male

DRUGS (2)
  1. DIANEAL-N PD-2 2 5 [Suspect]
     Indication: RENAL FAILURE CHRONIC
     Route: 033
     Dates: start: 201002, end: 201308
  2. EXTRANEAL [Suspect]
     Indication: RENAL FAILURE CHRONIC
     Route: 033
     Dates: start: 201002, end: 201308

REACTIONS (2)
  - Cerebrovascular accident [Fatal]
  - Endocarditis [Unknown]
